FAERS Safety Report 18598715 (Version 3)
Quarter: 2020Q4

REPORT INFORMATION
  Report Type: Spontaneous
  Country: US (occurrence: US)
  Receive Date: 20201210
  Receipt Date: 20201214
  Transmission Date: 20210114
  Serious: No
  Sender: FDA-Public Use
  Company Number: US-SA-2020SA349271

PATIENT

DRUGS (1)
  1. ENOXAPARIN SODIUM. [Suspect]
     Active Substance: ENOXAPARIN SODIUM
     Dosage: 50 MG DOSE FROM A 60 MG SYRINGE
     Route: 065

REACTIONS (6)
  - Occupational exposure to product [Unknown]
  - Device deployment issue [Unknown]
  - Injury associated with device [Unknown]
  - Device malfunction [Unknown]
  - Incorrect dose administered [Unknown]
  - Device safety feature issue [Unknown]
